FAERS Safety Report 5907915-3 (Version None)
Quarter: 2008Q4

REPORT INFORMATION
  Report Type: 
  Country: None (occurrence: None)
  Receive Date: 20081003
  Receipt Date: 20080922
  Transmission Date: 20090506
  Serious: Yes (Other)
  Sender: FDA-Public Use
  Company Number: US-ELI_LILLY_AND_COMPANY-US200809004949

PATIENT
  Age: 36 Year
  Sex: Female

DRUGS (2)
  1. STRATTERA [Suspect]
     Indication: ATTENTION DEFICIT/HYPERACTIVITY DISORDER
     Dosage: 18 MG, DAILY (1/D)
  2. STRATTERA [Suspect]
     Dosage: 25 MG, DAILY (1/D)

REACTIONS (2)
  - CEREBROVASCULAR ACCIDENT [None]
  - HYPOAESTHESIA [None]
